FAERS Safety Report 22179377 (Version 2)
Quarter: 2023Q4

REPORT INFORMATION
  Report Type: Spontaneous
  Country: DE (occurrence: DE)
  Receive Date: 20230406
  Receipt Date: 20231006
  Transmission Date: 20240110
  Serious: No
  Sender: FDA-Public Use
  Company Number: None

PATIENT
  Age: 64 Year
  Sex: Male
  Weight: 87 kg

DRUGS (7)
  1. IBUPROFEN [Suspect]
     Active Substance: IBUPROFEN
     Indication: Product used for unknown indication
     Dosage: UNK
     Route: 065
  2. BUTYLSCOPOLAMINE BROMIDE [Suspect]
     Active Substance: BUTYLSCOPOLAMINE BROMIDE
     Indication: Product used for unknown indication
     Dosage: 10 DOSAGE FORM
     Route: 048
     Dates: start: 20201212, end: 20201214
  3. ACETAMINOPHEN [Suspect]
     Active Substance: ACETAMINOPHEN
     Indication: Pain
     Dosage: UNK
     Route: 048
     Dates: start: 20201212, end: 20201214
  4. ACETAMINOPHEN [Suspect]
     Active Substance: ACETAMINOPHEN
     Indication: COVID-19
     Dosage: UNK
     Route: 048
     Dates: start: 20201212, end: 20201214
  5. ACETAMINOPHEN\DEXTROMETHORPHAN HYDROBROMIDE\DOXYLAMINE\EPHEDRINE SULFA [Suspect]
     Active Substance: ACETAMINOPHEN\DEXTROMETHORPHAN HYDROBROMIDE\DOXYLAMINE\EPHEDRINE SULFATE
     Indication: Product used for unknown indication
     Dosage: 60 MILLILITER
     Route: 048
     Dates: start: 20201212, end: 20201214
  6. ACETAMINOPHEN\ASCORBIC ACID\CAFFEINE\CHLORPHENIRAMINE MALEATE [Suspect]
     Active Substance: ACETAMINOPHEN\ASCORBIC ACID\CAFFEINE\CHLORPHENIRAMINE MALEATE
     Indication: COVID-19
     Dosage: 4 DOSAGE FORM
     Route: 048
     Dates: start: 20201212, end: 20201214
  7. ACETAMINOPHEN\CAFFEINE\PROPYPHENAZONE [Suspect]
     Active Substance: ACETAMINOPHEN\CAFFEINE\PROPYPHENAZONE
     Indication: Product used for unknown indication
     Dosage: UNK
     Route: 065

REACTIONS (4)
  - Paraesthesia [Recovering/Resolving]
  - Sleep disorder [Recovering/Resolving]
  - Skin burning sensation [Recovering/Resolving]
  - Abdominal pain upper [Recovering/Resolving]

NARRATIVE: CASE EVENT DATE: 20201201
